FAERS Safety Report 4898353-3 (Version None)
Quarter: 2006Q1

REPORT INFORMATION
  Report Type: 
  Country: None (occurrence: None)
  Receive Date: 20060131
  Receipt Date: 20060131
  Transmission Date: 20060701
  Serious: No
  Sender: FDA-Public Use
  Company Number: None

PATIENT
  Age: 41 Year
  Sex: Female
  Weight: 79.3795 kg

DRUGS (1)
  1. KETEK [Suspect]
     Indication: SINUSITIS
     Dosage: PO
     Route: 048
     Dates: start: 20050501, end: 20050512

REACTIONS (4)
  - BODY TEMPERATURE INCREASED [None]
  - GALLBLADDER DISORDER [None]
  - HEPATIC FAILURE [None]
  - PAIN [None]
